FAERS Safety Report 8472177-2 (Version None)
Quarter: 2012Q2

REPORT INFORMATION
  Report Type: 
  Country: None (occurrence: None)
  Receive Date: 20120323
  Receipt Date: 20111012
  Transmission Date: 20120825
  Serious: Yes (Disabling, Other)
  Sender: FDA-Public Use
  Company Number: 163-21880-11082750

PATIENT
  Age: 79 Year
  Sex: Female
  Weight: 57.2 kg

DRUGS (4)
  1. CHEMOTHERAPY (CHEMOTHERAPEUTICS) [Concomitant]
  2. COUMADIN [Concomitant]
  3. REVLIMID [Suspect]
  4. REVLIMID [Suspect]
     Indication: MULTIPLE MYELOMA
     Dosage: 15 MG, DAILY FOR 5 DAYS, EACH WEEK, PO
     Route: 048
     Dates: start: 20110803

REACTIONS (1)
  - DIARRHOEA [None]
